FAERS Safety Report 24211515 (Version 1)
Quarter: 2024Q3

REPORT INFORMATION
  Report Type: Spontaneous
  Country: CN (occurrence: CN)
  Receive Date: 20240814
  Receipt Date: 20240814
  Transmission Date: 20241017
  Serious: Yes (Other)
  Sender: DR REDDYS
  Company Number: None

PATIENT
  Age: 37 Year
  Sex: Male

DRUGS (2)
  1. OLANZAPINE [Suspect]
     Active Substance: OLANZAPINE
     Indication: Bipolar I disorder
     Dosage: 5MG,BID
     Route: 048
     Dates: start: 20240709, end: 20240722
  2. VALPROATE MAGNESIUM [Concomitant]
     Active Substance: VALPROATE MAGNESIUM
     Indication: Bipolar I disorder
     Dosage: 0.5G,BID
     Route: 048
     Dates: start: 20240704, end: 20240709

REACTIONS (1)
  - Altered state of consciousness [Recovered/Resolved]

NARRATIVE: CASE EVENT DATE: 20240709
